FAERS Safety Report 17854150 (Version 1)
Quarter: 2020Q2

REPORT INFORMATION
  Report Type: Spontaneous
  Country: CA (occurrence: CA)
  Receive Date: 20200603
  Receipt Date: 20200603
  Transmission Date: 20200714
  Serious: Yes (Other)
  Sender: FDA-Public Use
  Company Number: CA-009507513-2006CAN000605

PATIENT
  Age: 71 Year
  Sex: Male

DRUGS (1)
  1. CUBICIN [Suspect]
     Active Substance: DAPTOMYCIN
     Indication: OSTEOMYELITIS ACUTE
     Dosage: 8 MILLIGRAM, 1 EVERY 1 DAYS, INTRAVENOUS BOLUS, DOSAGE FORM NOT SPECIFIED
     Route: 042

REACTIONS (3)
  - Blood creatine phosphokinase increased [Unknown]
  - Blood creatine increased [Unknown]
  - Myalgia [Unknown]
